FAERS Safety Report 11973107 (Version 2)
Quarter: 2016Q1

REPORT INFORMATION
  Report Type: Spontaneous
  Country: US (occurrence: US)
  Receive Date: 20160128
  Receipt Date: 20160205
  Transmission Date: 20160526
  Serious: Yes (Death)
  Sender: FDA-Public Use
  Company Number: US-LUNDBECK-DKLU2009187

PATIENT
  Age: 33 Year
  Sex: Male

DRUGS (3)
  1. ONFI [Suspect]
     Active Substance: CLOBAZAM
     Indication: LENNOX-GASTAUT SYNDROME
     Route: 048
     Dates: start: 201510
  2. ONFI [Suspect]
     Active Substance: CLOBAZAM
     Indication: EPILEPSY
  3. ONFI [Suspect]
     Active Substance: CLOBAZAM
     Indication: SEIZURE
     Route: 048
     Dates: start: 201510

REACTIONS (1)
  - Sudden unexplained death in epilepsy [Fatal]

NARRATIVE: CASE EVENT DATE: 20151225
